FAERS Safety Report 25599881 (Version 1)
Quarter: 2025Q3

REPORT INFORMATION
  Report Type: Spontaneous
  Country: US (occurrence: US)
  Receive Date: 20250724
  Receipt Date: 20250724
  Transmission Date: 20251021
  Serious: No
  Sender: KVK-TECH
  Company Number: US-KVK-TECH, INC-20250300036

PATIENT
  Sex: Female

DRUGS (1)
  1. BENZPHETAMINE HYDROCHLORIDE [Suspect]
     Active Substance: BENZPHETAMINE HYDROCHLORIDE
     Indication: Decreased appetite
     Route: 065
     Dates: end: 202502

REACTIONS (2)
  - Product dose omission issue [Unknown]
  - Product availability issue [Unknown]
